FAERS Safety Report 5889895-2 (Version None)
Quarter: 2008Q3

REPORT INFORMATION
  Report Type: 
  Country: None (occurrence: None)
  Receive Date: 20080919
  Receipt Date: 20080910
  Transmission Date: 20090109
  Serious: Yes (Hospitalization)
  Sender: FDA-Public Use
  Company Number: PHHY2008FR20975

PATIENT
  Sex: Female

DRUGS (13)
  1. COTAREG [Suspect]
     Indication: HYPERTENSION
     Dosage: 80/12.5 MG/DAY
     Dates: end: 20080217
  2. AVANDAMET [Suspect]
     Indication: DIABETES MELLITUS
     Dosage: 2 DF, QD
     Dates: end: 20080217
  3. DIOSMINE [Suspect]
     Indication: VENOUS INSUFFICIENCY
     Dosage: 1 DF, QD
     Dates: end: 20080217
  4. LAMALINE [Suspect]
     Indication: PAIN
     Dosage: 3 DF, QD
     Dates: end: 20080217
  5. ESOMEPRAZOLE [Concomitant]
     Dosage: UNK
     Dates: end: 20080217
  6. ZOPICLONE [Concomitant]
     Indication: INSOMNIA
     Dosage: UNK
     Dates: end: 20080219
  7. TAHOR [Concomitant]
     Indication: HYPERCHOLESTEROLAEMIA
     Dosage: 10 MG DAILY
     Dates: end: 20080219
  8. XALATAN [Concomitant]
     Dosage: UNK
     Dates: end: 20080217
  9. TRUSOPT [Concomitant]
     Dosage: UNK
     Dates: end: 20080217
  10. REFRESH [Concomitant]
     Dosage: UNK
     Dates: end: 20080217
  11. BISOPROLOL FUMARATE [Concomitant]
     Dosage: 1 DF, QD
  12. ASPIRIN [Concomitant]
     Dosage: 75 MG, QD
  13. TRINITRINE [Concomitant]
     Dosage: 10 MG/DAY

REACTIONS (11)
  - AMNESIA [None]
  - ANAEMIA [None]
  - ASTHENIA [None]
  - ATRIOVENTRICULAR BLOCK FIRST DEGREE [None]
  - CONFUSIONAL STATE [None]
  - CREATININE RENAL CLEARANCE DECREASED [None]
  - HALLUCINATIONS, MIXED [None]
  - HYPONATRAEMIA [None]
  - LOSS OF CONSCIOUSNESS [None]
  - MALAISE [None]
  - VOMITING [None]
